FAERS Safety Report 25602608 (Version 1)
Quarter: 2025Q3

REPORT INFORMATION
  Report Type: Spontaneous
  Country: US (occurrence: US)
  Receive Date: 20250724
  Receipt Date: 20250724
  Transmission Date: 20251021
  Serious: Yes (Other)
  Sender: ALEXION PHARMACEUTICALS
  Company Number: US-ASTRAZENECA-202507USA015382US

PATIENT
  Age: 64 Year
  Sex: Male

DRUGS (8)
  1. CRESTOR [Interacting]
     Active Substance: ROSUVASTATIN CALCIUM
     Route: 065
  2. VYNDAMAX [Interacting]
     Active Substance: TAFAMIDIS
     Dosage: 61 MILLIGRAM, QD
  3. ATENOLOL [Interacting]
     Active Substance: ATENOLOL
  4. CALCIUM [Interacting]
     Active Substance: CALCIUM
  5. IRON [Interacting]
     Active Substance: IRON
  6. MAVYRET [Interacting]
     Active Substance: GLECAPREVIR\PIBRENTASVIR
  7. PREDNISONE [Interacting]
     Active Substance: PREDNISONE
  8. TACROLIMUS [Interacting]
     Active Substance: TACROLIMUS

REACTIONS (5)
  - Neuropathy peripheral [Recovering/Resolving]
  - Oedema [Unknown]
  - Drug interaction [Unknown]
  - Paraesthesia [Unknown]
  - Amyloidosis [Unknown]
